FAERS Safety Report 5390706-2 (Version None)
Quarter: 2007Q3

REPORT INFORMATION
  Report Type: 
  Country: None (occurrence: None)
  Receive Date: 20070716
  Receipt Date: 20070702
  Transmission Date: 20080115
  Serious: Yes (Life-Threatening)
  Sender: FDA-Public Use
  Company Number: DE-1163355

PATIENT
  Age: 58 Year
  Sex: Female
  Weight: 67 kg

DRUGS (5)
  1. AZOPT [Suspect]
     Indication: GLAUCOMA
     Dosage: EYE DROPS, 1 GTT BID
     Route: 047
     Dates: start: 20070619, end: 20070621
  2. THYRONAJOD                     (JODTHYROX) [Concomitant]
     Dosage: 75MG QD
     Route: 047
  3. D-FLUORETTEN (D-FLUORETTEN) [Concomitant]
  4. AARANE (ALLERGOSPASMIN) [Concomitant]
  5. DESLORATADINE [Concomitant]

REACTIONS (6)
  - ALOPECIA [None]
  - BRONCHOSPASM [None]
  - DYSPNOEA [None]
  - HEADACHE [None]
  - OBSTRUCTION [None]
  - PAIN [None]
